FAERS Safety Report 19279311 (Version 1)
Quarter: 2021Q2

REPORT INFORMATION
  Report Type: Spontaneous
  Country: US (occurrence: US)
  Receive Date: 20210520
  Receipt Date: 20210520
  Transmission Date: 20210717
  Serious: Yes (Disabling)
  Sender: FDA-Public Use
  Company Number: None

PATIENT
  Age: 57 Year
  Sex: Female
  Weight: 64.35 kg

DRUGS (5)
  1. ZOFRAN [Concomitant]
     Active Substance: ONDANSETRON HYDROCHLORIDE
  2. AIMOVIG [Suspect]
     Active Substance: ERENUMAB-AOOE
     Indication: MIGRAINE
     Dates: start: 20180701, end: 20181230
  3. BELSOMRA [Concomitant]
     Active Substance: SUVOREXANT
  4. METOFORMIN [Concomitant]
     Active Substance: METFORMIN HYDROCHLORIDE
  5. PHENERGAN [Concomitant]
     Active Substance: PROMETHAZINE HYDROCHLORIDE

REACTIONS (11)
  - Arthralgia [None]
  - Fatigue [None]
  - Alopecia [None]
  - Hot flush [None]
  - Pain [None]
  - Abdominal distension [None]
  - Weight increased [None]
  - Hypertension [None]
  - Constipation [None]
  - Insomnia [None]
  - Influenza like illness [None]

NARRATIVE: CASE EVENT DATE: 20180701
